FAERS Safety Report 6152291-7 (Version None)
Quarter: 2009Q2

REPORT INFORMATION
  Report Type: 
  Country: None (occurrence: None)
  Receive Date: 20090410
  Receipt Date: 20090402
  Transmission Date: 20091009
  Serious: Yes (Hospitalization, Other)
  Sender: FDA-Public Use
  Company Number: ES-AMGEN-UK328563

PATIENT
  Sex: Male
  Weight: 68 kg

DRUGS (9)
  1. MIMPARA [Suspect]
     Indication: HYPERPARATHYROIDISM SECONDARY
     Route: 048
     Dates: start: 20070221, end: 20090106
  2. TICLID [Concomitant]
     Route: 048
     Dates: start: 20040129
  3. VITAMIN B 1-6-12 [Concomitant]
     Route: 048
     Dates: start: 20040323
  4. RENAGEL [Concomitant]
     Route: 048
     Dates: start: 20040129
  5. OMEPRAZOLE [Concomitant]
     Route: 048
     Dates: start: 20040824
  6. THIAMAZOLE [Concomitant]
     Route: 048
     Dates: start: 20080817
  7. ZYLORIC [Concomitant]
     Route: 048
     Dates: start: 20080407, end: 20090213
  8. CARDYL [Concomitant]
     Route: 048
     Dates: start: 20080717, end: 20080817
  9. ARANESP [Concomitant]
     Route: 048
     Dates: start: 20080717

REACTIONS (2)
  - HYPOTENSION [None]
  - SYNCOPE [None]
